FAERS Safety Report 25155266 (Version 1)
Quarter: 2025Q2

REPORT INFORMATION
  Report Type: Spontaneous
  Country: BE (occurrence: BE)
  Receive Date: 20250403
  Receipt Date: 20250403
  Transmission Date: 20250716
  Serious: Yes (Hospitalization)
  Sender: MYLAN
  Company Number: BE-MYLANLABS-2025M1028041

PATIENT
  Age: 61 Year
  Sex: Female

DRUGS (12)
  1. METHOTREXATE [Suspect]
     Active Substance: METHOTREXATE
     Indication: Myositis
     Dosage: RECEIVED FOR THREE MONTHS
  2. METHOTREXATE [Suspect]
     Active Substance: METHOTREXATE
     Dosage: RECEIVED FOR THREE MONTHS
     Route: 058
  3. METHOTREXATE [Suspect]
     Active Substance: METHOTREXATE
     Dosage: RECEIVED FOR THREE MONTHS
     Route: 058
  4. METHOTREXATE [Suspect]
     Active Substance: METHOTREXATE
     Dosage: RECEIVED FOR THREE MONTHS
  5. METHYLPREDNISOLONE [Suspect]
     Active Substance: METHYLPREDNISOLONE
     Indication: Myositis
     Dosage: 64 MILLIGRAM, QD,RECEIVED 64MG DAILY INITIALLY AND DOSE WAS TAPERED DOWN TO 8MG; RECEIVED FOR 3 MONTHS
  6. METHYLPREDNISOLONE [Suspect]
     Active Substance: METHYLPREDNISOLONE
     Dosage: 64 MILLIGRAM, QD,RECEIVED 64MG DAILY INITIALLY AND DOSE WAS TAPERED DOWN TO 8MG; RECEIVED FOR 3 MONTHS
  7. METHYLPREDNISOLONE [Suspect]
     Active Substance: METHYLPREDNISOLONE
     Dosage: 64 MILLIGRAM, QD,RECEIVED 64MG DAILY INITIALLY AND DOSE WAS TAPERED DOWN TO 8MG; RECEIVED FOR 3 MONTHS
     Route: 065
  8. METHYLPREDNISOLONE [Suspect]
     Active Substance: METHYLPREDNISOLONE
     Dosage: 64 MILLIGRAM, QD,RECEIVED 64MG DAILY INITIALLY AND DOSE WAS TAPERED DOWN TO 8MG; RECEIVED FOR 3 MONTHS
     Route: 065
  9. METHYLPREDNISOLONE [Suspect]
     Active Substance: METHYLPREDNISOLONE
  10. METHYLPREDNISOLONE [Suspect]
     Active Substance: METHYLPREDNISOLONE
  11. METHYLPREDNISOLONE [Suspect]
     Active Substance: METHYLPREDNISOLONE
     Route: 065
  12. METHYLPREDNISOLONE [Suspect]
     Active Substance: METHYLPREDNISOLONE
     Route: 065

REACTIONS (1)
  - Treatment failure [Unknown]
